FAERS Safety Report 9501379 (Version 1)
Quarter: 2013Q3

REPORT INFORMATION
  Report Type: Spontaneous
  Country: US (occurrence: US)
  Receive Date: 20130905
  Receipt Date: 20130905
  Transmission Date: 20140515
  Serious: No
  Sender: FDA-Public Use
  Company Number: US-PFIZER INC-2013255753

PATIENT
  Age: 72 Year
  Sex: Female
  Weight: 57.14 kg

DRUGS (3)
  1. LEVOXYL [Suspect]
     Indication: THYROID DISORDER
     Dosage: 138 UG, 1X/DAY
  2. LEVOXYL [Suspect]
     Dosage: 125 UG, 1X/DAY
  3. CENTRUM SILVER ADULTS 50+ [Suspect]
     Indication: VITAMIN SUPPLEMENTATION
     Dosage: UNK, 1X/DAY
     Dates: end: 201309

REACTIONS (2)
  - Rash generalised [Not Recovered/Not Resolved]
  - Headache [Not Recovered/Not Resolved]
